FAERS Safety Report 5909074-X (Version None)
Quarter: 2008Q4

REPORT INFORMATION
  Report Type: 
  Country: None (occurrence: None)
  Receive Date: 20081006
  Receipt Date: 20080922
  Transmission Date: 20090506
  Serious: Yes (Other)
  Sender: FDA-Public Use
  Company Number: AT-ROCHE-588693

PATIENT
  Age: 56 Year
  Sex: Male

DRUGS (5)
  1. PEGASYS [Suspect]
     Dosage: DOSAGE: 180 MCG WEEKLY FOR 48 WEEKS.
     Route: 065
  2. PEGASYS [Suspect]
     Dosage: DOSE REDUCED
     Route: 065
  3. RIBAVIRIN [Suspect]
     Dosage: 800-200 MG/DAY FOR 48 WEEKS
     Route: 065
  4. RIBAVIRIN [Suspect]
     Dosage: DOSAGE REDUCED
     Route: 065
  5. MESALAMINE [Suspect]
     Indication: CROHN'S DISEASE
     Route: 065

REACTIONS (4)
  - ANAEMIA [None]
  - CROHN'S DISEASE [None]
  - HEPATITIS C [None]
  - LEUKOPENIA [None]
